FAERS Safety Report 9031894 (Version 2)
Quarter: 2013Q1

REPORT INFORMATION
  Report Type: Spontaneous
  Country: US (occurrence: US)
  Receive Date: 20130125
  Receipt Date: 20130221
  Transmission Date: 20140127
  Serious: Yes (Hospitalization)
  Sender: FDA-Public Use
  Company Number: US-ELI_LILLY_AND_COMPANY-US201201000507

PATIENT
  Age: 70 None
  Sex: Female

DRUGS (13)
  1. FORTEO [Suspect]
     Indication: OSTEOPOROSIS
     Dosage: 20 UG, QD
     Route: 065
     Dates: start: 20111219
  2. FORTEO [Suspect]
     Dosage: 20 UG, QD
     Route: 065
  3. FORTEO [Suspect]
     Dosage: 20 UG, QD
  4. HMG COA REDUCTASE INHIBITORS [Concomitant]
     Indication: BLOOD CHOLESTEROL ABNORMAL
  5. ATENOLOL [Concomitant]
     Dosage: 100 MG, BID
  6. FUROSEMIDE [Concomitant]
     Dosage: 20 MG, QD
  7. ASPIRIN [Concomitant]
     Dosage: 81 MG, QD
  8. MICARDIS [Concomitant]
     Dosage: 80 MG, QD
  9. HYDRALAZINE [Concomitant]
     Dosage: 25 MG, BID
  10. MULTAQ [Concomitant]
     Dosage: 400 MG, BID
  11. XARELTO [Concomitant]
     Dosage: 20 MG, QD
  12. CYCLOBENZAPRINE [Concomitant]
     Dosage: 10 MG, TID
  13. SALINE [Concomitant]

REACTIONS (16)
  - Atrial fibrillation [Unknown]
  - Abdominal distension [Not Recovered/Not Resolved]
  - Local swelling [Not Recovered/Not Resolved]
  - Local swelling [Unknown]
  - Abdominal pain upper [Unknown]
  - Limb discomfort [Unknown]
  - Back pain [Not Recovered/Not Resolved]
  - Fatigue [Unknown]
  - Pain [Not Recovered/Not Resolved]
  - Pain [Unknown]
  - Headache [Unknown]
  - Muscle spasms [Not Recovered/Not Resolved]
  - Local swelling [Unknown]
  - Crying [Unknown]
  - Foot fracture [Unknown]
  - Ankle fracture [Unknown]
